FAERS Safety Report 16159736 (Version 2)
Quarter: 2019Q2

REPORT INFORMATION
  Report Type: Report from Study
  Country: US (occurrence: US)
  Receive Date: 20190404
  Receipt Date: 20190426
  Transmission Date: 20190711
  Serious: Yes (Other)
  Sender: FDA-Public Use
  Company Number: US-JNJFOC-20190403784

PATIENT
  Age: 36 Year
  Sex: Female

DRUGS (3)
  1. STELARA [Suspect]
     Active Substance: USTEKINUMAB
     Indication: CROHN^S DISEASE
     Route: 058
     Dates: start: 201810
  2. STELARA [Suspect]
     Active Substance: USTEKINUMAB
     Indication: CROHN^S DISEASE
     Route: 058
     Dates: start: 20180821
  3. AZATHIOPRINE. [Concomitant]
     Active Substance: AZATHIOPRINE
     Indication: IMMUNE SYSTEM DISORDER
     Route: 065
     Dates: start: 2016

REACTIONS (13)
  - Lymphadenopathy [Unknown]
  - Ageusia [Unknown]
  - Mass [Unknown]
  - Hepatic enzyme increased [Unknown]
  - Lymph node pain [Unknown]
  - Enzyme abnormality [Unknown]
  - Uterine polyp [Unknown]
  - Weight increased [Unknown]
  - Decreased appetite [Unknown]
  - Anaemia [Unknown]
  - Abdominal pain upper [Unknown]
  - Cervical polyp [Unknown]
  - Alopecia [Unknown]
